FAERS Safety Report 9510761 (Version 2)
Quarter: 2013Q3

REPORT INFORMATION
  Report Type: Spontaneous
  Country: CA (occurrence: CA)
  Receive Date: 20130910
  Receipt Date: 20130910
  Transmission Date: 20140515
  Serious: Yes (Hospitalization)
  Sender: FDA-Public Use
  Company Number: CA-AMGEN-CANSP2012030345

PATIENT
  Age: 49 Year
  Sex: Female

DRUGS (8)
  1. ENBREL [Suspect]
     Indication: RHEUMATOID ARTHRITIS
     Dosage: 50 MG, QWK
     Route: 065
     Dates: start: 20110916
  2. METHOTREXATE [Concomitant]
     Dosage: UNK UNK, QWK
  3. FOLIC ACID [Concomitant]
     Dosage: 5 MG, QD
  4. CALCIUM W/VITAMIN D                /00188401/ [Concomitant]
     Dosage: UNK UNK, QD
  5. RANIDINE                           /00550801/ [Concomitant]
     Dosage: 150 MG, BID
  6. NAPROXEN [Concomitant]
     Dosage: UNK UNK, BID
  7. TECTA [Concomitant]
     Dosage: UNK
  8. CALCIUM [Concomitant]
     Dosage: UNK

REACTIONS (2)
  - Mastoiditis [Not Recovered/Not Resolved]
  - Ear infection [Recovered/Resolved]
